FAERS Safety Report 21828801 (Version 2)
Quarter: 2023Q1

REPORT INFORMATION
  Report Type: Report from Study
  Country: US (occurrence: US)
  Receive Date: 20230106
  Receipt Date: 20230227
  Transmission Date: 20230417
  Serious: Yes (Hospitalization, Other)
  Sender: FDA-Public Use
  Company Number: US-ABBVIE-4259600

PATIENT
  Sex: Female
  Weight: 86 kg

DRUGS (3)
  1. RINVOQ [Suspect]
     Active Substance: UPADACITINIB
     Indication: Rheumatoid arthritis
     Dosage: 15 MILLIGRAM
     Route: 048
     Dates: start: 202102, end: 202212
  2. RINVOQ [Suspect]
     Active Substance: UPADACITINIB
     Indication: Rheumatoid arthritis
     Route: 048
  3. MODERNA COVID-19 VACCINE [Concomitant]
     Active Substance: ELASOMERAN
     Indication: COVID-19 immunisation
     Dosage: BOOSTER, ONE IN ONCE
     Route: 030
     Dates: start: 20220217, end: 20220217

REACTIONS (7)
  - Vomiting [Recovered/Resolved]
  - Cataract [Recovered/Resolved]
  - Nephrolithiasis [Recovered/Resolved]
  - Vision blurred [Recovering/Resolving]
  - COVID-19 [Recovered/Resolved]
  - Irritable bowel syndrome [Recovering/Resolving]
  - Foot fracture [Recovered/Resolved]

NARRATIVE: CASE EVENT DATE: 20220101
